FAERS Safety Report 18240122 (Version 2)
Quarter: 2020Q3

REPORT INFORMATION
  Report Type: Spontaneous
  Country: CA (occurrence: CA)
  Receive Date: 20200908
  Receipt Date: 20200915
  Transmission Date: 20201103
  Serious: Yes (Other)
  Sender: FDA-Public Use
  Company Number: CA-PFIZER INC-2020342603

PATIENT
  Age: 68 Year
  Sex: Female
  Weight: 77 kg

DRUGS (18)
  1. HYDROCORTISONE. [Concomitant]
     Active Substance: HYDROCORTISONE
     Indication: ROSACEA
     Dosage: 1 %, AS NEEDED (ON FACE PRN)
     Route: 065
  2. PREDNISONE. [Concomitant]
     Active Substance: PREDNISONE
     Dosage: 6 MG
     Route: 065
     Dates: start: 201910
  3. AERIUS [EBASTINE] [Concomitant]
     Active Substance: EBASTINE
     Indication: HYPERSENSITIVITY
     Dosage: UNK
     Route: 065
  4. PREDNISONE. [Concomitant]
     Active Substance: PREDNISONE
     Dosage: 25 MG
     Route: 065
     Dates: start: 202008
  5. SEPTRA [Concomitant]
     Active Substance: SULFAMETHOXAZOLE\TRIMETHOPRIM
     Indication: PROPHYLAXIS
     Dosage: UNK UNK, 1X/DAY
     Route: 065
  6. SEPTRA [Concomitant]
     Active Substance: SULFAMETHOXAZOLE\TRIMETHOPRIM
     Indication: PULMONARY MASS
  7. ALVESCO [Concomitant]
     Active Substance: CICLESONIDE
     Indication: ASTHMA
     Dosage: 200 UG, 2X/DAY
     Route: 055
  8. PREDNISONE. [Concomitant]
     Active Substance: PREDNISONE
     Indication: VASCULITIS
     Dosage: 50 MG, 1X/DAY
     Route: 065
     Dates: start: 201910
  9. PREDNISONE. [Concomitant]
     Active Substance: PREDNISONE
     Dosage: 50 MG
     Route: 065
     Dates: start: 202006
  10. VENTOLIN [Concomitant]
     Active Substance: ALBUTEROL SULFATE
     Indication: ASTHMA
     Dosage: 1000 UG, AS NEEDED
     Route: 055
  11. BENADRYL [Concomitant]
     Active Substance: DIPHENHYDRAMINE HYDROCHLORIDE
     Indication: HYPERSENSITIVITY
     Dosage: UNK
     Route: 065
  12. LEUCOVORINE [Concomitant]
     Active Substance: LEUCOVORIN
     Dosage: UNK
     Dates: start: 20200228, end: 2020
  13. VITAMIN D [COLECALCIFEROL] [Concomitant]
     Active Substance: CHOLECALCIFEROL
     Indication: BONE DENSITY ABNORMAL
     Dosage: 2000 UNK, 1X/DAY
     Route: 065
  14. METHOTREXATE SODIUM. [Suspect]
     Active Substance: METHOTREXATE SODIUM
     Dosage: 25 MG, UNK
     Route: 058
     Dates: start: 20200131, end: 20200417
  15. TECTA [Concomitant]
     Active Substance: PANTOPRAZOLE MAGNESIUM
     Indication: ABDOMINAL PAIN UPPER
     Dosage: 40 MG, 1X/DAY
     Route: 065
  16. BETAMETHASONE. [Concomitant]
     Active Substance: BETAMETHASONE
     Indication: ECZEMA
     Dosage: UNK UNK, AS NEEDED
     Route: 065
  17. PREDNISONE. [Concomitant]
     Active Substance: PREDNISONE
     Dosage: 40 MG
     Route: 065
     Dates: start: 202004
  18. PREDNISONE. [Concomitant]
     Active Substance: PREDNISONE
     Dosage: 15 MG

REACTIONS (56)
  - Drug hypersensitivity [Unknown]
  - Blindness [Unknown]
  - Asthma [Unknown]
  - Cough [Unknown]
  - Vision blurred [Unknown]
  - Epistaxis [Unknown]
  - Disturbance in attention [Unknown]
  - Night sweats [Unknown]
  - Nausea [Unknown]
  - Mouth swelling [Recovering/Resolving]
  - Pruritus [Unknown]
  - Diarrhoea [Recovered/Resolved]
  - Diplopia [Unknown]
  - Off label use [Unknown]
  - Vitreous floaters [Unknown]
  - Swelling [Recovering/Resolving]
  - Pharyngeal swelling [Unknown]
  - Eye pain [Unknown]
  - Sneezing [Unknown]
  - Abdominal distension [Unknown]
  - Renal pain [Unknown]
  - Rash [Unknown]
  - Constipation [Unknown]
  - Ear swelling [Recovering/Resolving]
  - Fatigue [Unknown]
  - Mood swings [Unknown]
  - Cold sweat [Unknown]
  - Pain [Unknown]
  - Blister [Unknown]
  - Vomiting [Recovered/Resolved]
  - Dysphagia [Unknown]
  - Rhinorrhoea [Unknown]
  - Gastrointestinal disorder [Unknown]
  - Product use issue [Unknown]
  - Nasal oedema [Recovering/Resolving]
  - Pustule [Unknown]
  - Drug intolerance [Unknown]
  - Eczema [Unknown]
  - Headache [Unknown]
  - Aphasia [Unknown]
  - Pyrexia [Unknown]
  - Abdominal pain upper [Unknown]
  - Contusion [Unknown]
  - Upper-airway cough syndrome [Unknown]
  - Jaundice [Unknown]
  - Rosacea [Unknown]
  - Alopecia [Unknown]
  - Feeling abnormal [Unknown]
  - Muscle spasms [Unknown]
  - Poor quality sleep [Unknown]
  - Eye swelling [Recovering/Resolving]
  - Urticaria [Unknown]
  - Rash macular [Unknown]
  - Somnolence [Unknown]
  - Mouth ulceration [Unknown]
  - Musculoskeletal stiffness [Unknown]

NARRATIVE: CASE EVENT DATE: 2020
